FAERS Safety Report 24844093 (Version 2)
Quarter: 2025Q1

REPORT INFORMATION
  Report Type: Spontaneous
  Country: US (occurrence: US)
  Receive Date: 20250115
  Receipt Date: 20250124
  Transmission Date: 20250409
  Serious: No
  Sender: SANOFI AVENTIS
  Company Number: US-SA-2025SA009897

PATIENT
  Age: 20 Year
  Sex: Male
  Weight: 83.41 kg

DRUGS (9)
  1. DUPIXENT [Suspect]
     Active Substance: DUPILUMAB
     Indication: Eosinophilic oesophagitis
     Dosage: 300MG; QW
     Route: 058
  2. VITAMINS [Concomitant]
     Active Substance: VITAMINS
  3. VITAMIN D3 [Concomitant]
     Active Substance: CHOLECALCIFEROL
  4. MELATONIN [Concomitant]
     Active Substance: MELATONIN
  5. PREDNISONE [Concomitant]
     Active Substance: PREDNISONE
  6. HYDROXYZINE HYDROCHLORIDE [Concomitant]
     Active Substance: HYDROXYZINE HYDROCHLORIDE
  7. CLONIDINE HYDROCHLORIDE [Concomitant]
     Active Substance: CLONIDINE HYDROCHLORIDE
  8. PREVACID [Concomitant]
     Active Substance: LANSOPRAZOLE
  9. ENTYVIO [Concomitant]
     Active Substance: VEDOLIZUMAB

REACTIONS (5)
  - Eosinophilic oesophagitis [Recovering/Resolving]
  - Eructation [Recovering/Resolving]
  - Dyspepsia [Recovering/Resolving]
  - Incorrect dose administered [Unknown]
  - Product dose omission in error [Unknown]
